FAERS Safety Report 16671891 (Version 1)
Quarter: 2019Q3

REPORT INFORMATION
  Report Type: Report from Study
  Country: None (occurrence: US)
  Receive Date: 20190806
  Receipt Date: 20190806
  Transmission Date: 20191004
  Serious: Yes (Other)
  Sender: FDA-Public Use
  Company Number: US-ABBVIE-19K-163-2825060-00

PATIENT
  Age: 84 Year
  Sex: Male

DRUGS (4)
  1. VENCLEXTA [Suspect]
     Active Substance: VENETOCLAX
     Dosage: BY MOUTH PLUS 2 OF 10MG TABLETS FOR A TOTAL DOSE OF 70MG DAILY ON DAYS 4-14
     Route: 048
     Dates: start: 201907
  2. VENCLEXTA [Suspect]
     Active Substance: VENETOCLAX
     Indication: CHRONIC MYELOMONOCYTIC LEUKAEMIA
     Route: 048
  3. VENCLEXTA [Suspect]
     Active Substance: VENETOCLAX
     Indication: WHITE BLOOD CELL COUNT INCREASED
     Dosage: TAKE 1 TABLET (50MG) BY MOUTH ON DAY 3,
     Route: 048
     Dates: start: 201907
  4. VENCLEXTA [Suspect]
     Active Substance: VENETOCLAX
     Dosage: STOP TREATMENT DAYS 15-28
     Route: 048
     Dates: start: 201907, end: 2019

REACTIONS (2)
  - Intentional product use issue [Unknown]
  - Malignant neoplasm progression [Unknown]

NARRATIVE: CASE EVENT DATE: 20190701
